FAERS Safety Report 7619210-5 (Version None)
Quarter: 2011Q3

REPORT INFORMATION
  Report Type: 
  Country: None (occurrence: None)
  Receive Date: 20110718
  Receipt Date: 20110708
  Transmission Date: 20111222
  Serious: Yes (Hospitalization, Disabling, Other)
  Sender: FDA-Public Use
  Company Number: PHEH2009US00889

PATIENT
  Sex: Female

DRUGS (44)
  1. ZOMETA [Suspect]
     Indication: NEOPLASM MALIGNANT
     Dates: start: 20020101, end: 20040101
  2. DEXAMETHASONE [Concomitant]
  3. AMOXICILLIN AND CLAVULANATE POTASSIUM [Concomitant]
  4. LEVAQUIN [Concomitant]
  5. ZITHROMAX [Concomitant]
  6. AMPICILLIN SODIUM [Concomitant]
     Dosage: 500 MG, UNK
  7. ZITHROMAX [Concomitant]
  8. PLASMAPHERESIS BLOOD-PACK SYSTEM INFUSION [Concomitant]
  9. SULFAMETHOXAZOLE AND TRIMETHOPRIM DOUBLE STRENGTH [Concomitant]
  10. ACYCLOVIR [Concomitant]
  11. PENICILLIN VK [Concomitant]
  12. ZOMETA [Suspect]
     Indication: MULTIPLE MYELOMA
  13. GABAPENTIN [Concomitant]
  14. ZOLPIDEM [Concomitant]
  15. LEXAPRO [Concomitant]
  16. THALIDOMIDE [Concomitant]
  17. AMBIEN [Concomitant]
  18. BORTEZOMIB [Concomitant]
  19. CHEMOTHERAPEUTICS NOS [Concomitant]
  20. DURAGESIC-100 [Concomitant]
  21. VELCADE [Concomitant]
  22. REVLIMID [Concomitant]
  23. ZYRTEC [Concomitant]
  24. PLAQUENIL [Concomitant]
  25. ETOPOSIDE [Concomitant]
  26. CEPHALEXIN [Concomitant]
     Dosage: 500 MG, UNK
  27. LIDOCAINE [Concomitant]
  28. CHLORHEXIDINE GLUCONATE [Concomitant]
  29. OXYCODONE HCL AND ACETAMINOPHEN [Concomitant]
  30. TEQUIN [Concomitant]
  31. CISPLATIN [Concomitant]
  32. LENALIDOMIDE [Concomitant]
  33. NAPROXEN [Concomitant]
     Dosage: 500 MG, UNK
  34. CALCIUM CARBONATE [Concomitant]
  35. PREDNISONE [Concomitant]
  36. CYCLOPHOSPHAMIDE [Concomitant]
  37. EFFEXOR XR [Concomitant]
     Dosage: 75 MG, UNK
  38. FEOGEN FA [Concomitant]
  39. FLUCONAZOLE [Concomitant]
  40. NEXIUM [Concomitant]
  41. VALTREX [Concomitant]
  42. LIDODERM [Concomitant]
  43. HYDROCODONE BITARTRATE AND ACETAMINOPHEN [Concomitant]
  44. PEPCID [Concomitant]

REACTIONS (54)
  - DISCOMFORT [None]
  - PNEUMONIA [None]
  - POST HERPETIC NEURALGIA [None]
  - NUCLEAR MAGNETIC RESONANCE IMAGING ABNORMAL [None]
  - PROTEIN URINE PRESENT [None]
  - DYSPHAGIA [None]
  - INFECTION [None]
  - LUNG INFILTRATION [None]
  - DISEASE PROGRESSION [None]
  - DEPRESSION [None]
  - ACUTE SINUSITIS [None]
  - STAPHYLOCOCCAL BACTERAEMIA [None]
  - SCAR [None]
  - EMOTIONAL DISTRESS [None]
  - QUALITY OF LIFE DECREASED [None]
  - SWELLING [None]
  - ENDOCARDITIS [None]
  - DYSPNOEA [None]
  - INFLAMMATION [None]
  - DIVERTICULUM INTESTINAL [None]
  - HAEMORRHOIDS [None]
  - PAIN IN EXTREMITY [None]
  - FALL [None]
  - LIGHT CHAIN ANALYSIS INCREASED [None]
  - AORTIC VALVE INCOMPETENCE [None]
  - MENTAL DISORDER [None]
  - HODGKIN'S DISEASE [None]
  - UPPER RESPIRATORY TRACT INFECTION [None]
  - FOOT FRACTURE [None]
  - NEUROPATHY PERIPHERAL [None]
  - ANHEDONIA [None]
  - HYPOXIA [None]
  - ARTHRALGIA [None]
  - URINARY TRACT INFECTION [None]
  - MUCOSAL INFLAMMATION [None]
  - PARAESTHESIA [None]
  - PULMONARY FIBROSIS [None]
  - HYPERMETABOLISM [None]
  - OSTEONECROSIS OF JAW [None]
  - PHYSICAL DISABILITY [None]
  - ANXIETY [None]
  - INJURY [None]
  - OSTEOMYELITIS [None]
  - HERPES ZOSTER [None]
  - OTITIS MEDIA [None]
  - PAIN [None]
  - PRIMARY SEQUESTRUM [None]
  - POOR VENOUS ACCESS [None]
  - PULMONARY GRANULOMA [None]
  - BONE DISORDER [None]
  - SPINAL OSTEOARTHRITIS [None]
  - INFLUENZA LIKE ILLNESS [None]
  - ATELECTASIS [None]
  - SOFT TISSUE DISORDER [None]
